FAERS Safety Report 24276160 (Version 2)
Quarter: 2024Q3

REPORT INFORMATION
  Report Type: Spontaneous
  Country: US (occurrence: US)
  Receive Date: 20240903
  Receipt Date: 20240923
  Transmission Date: 20241017
  Serious: No
  Sender: GILEAD
  Company Number: US-GILEAD-2024-0685997

PATIENT
  Age: 30 Year
  Sex: Male
  Weight: 74.83 kg

DRUGS (2)
  1. DESCOVY [Suspect]
     Active Substance: EMTRICITABINE\TENOFOVIR ALAFENAMIDE FUMARATE
     Indication: Prophylaxis against HIV infection
     Dosage: 225 MG, QD
     Route: 048
     Dates: start: 20240822, end: 20240823
  2. LISINOPRIL [Concomitant]
     Active Substance: LISINOPRIL
     Dosage: 10 MG, QD
     Route: 048
     Dates: start: 20240216

REACTIONS (3)
  - Rash pruritic [Recovered/Resolved]
  - Headache [Recovered/Resolved]
  - Dizziness [Recovered/Resolved]

NARRATIVE: CASE EVENT DATE: 20240822
